FAERS Safety Report 16192893 (Version 2)
Quarter: 2019Q2

REPORT INFORMATION
  Report Type: Spontaneous
  Country: KR (occurrence: KR)
  Receive Date: 20190413
  Receipt Date: 20190430
  Transmission Date: 20190711
  Serious: Yes (Hospitalization)
  Sender: FDA-Public Use
  Company Number: KR-009507513-1901KOR005408

PATIENT
  Sex: Male

DRUGS (10)
  1. KEYTRUDA [Suspect]
     Active Substance: PEMBROLIZUMAB
     Indication: LUNG NEOPLASM MALIGNANT
     Dosage: 200 MILLIGRAM, Q3;  QUANTITY: 2, DAYS:1
     Dates: start: 20181204
  2. KEYTRUDA [Suspect]
     Active Substance: PEMBROLIZUMAB
     Dosage: 200 MILLIGRAM; QUANTITY: 2, DAYS:1
     Dates: start: 20190208
  3. KEYTRUDA [Suspect]
     Active Substance: PEMBROLIZUMAB
     Dosage: 200 MILLIGRAM, Q3;  QUANTITY: 2, DAYS:1
     Dates: start: 20190301
  4. SODIUM CHLORIDE. [Concomitant]
     Active Substance: SODIUM CHLORIDE
     Dosage: QUANTITY: 1
     Dates: start: 20181204
  5. KEYTRUDA [Suspect]
     Active Substance: PEMBROLIZUMAB
     Dosage: 200 MILLIGRAM, Q3;  QUANTITY: 2, DAYS:1
     Dates: start: 20181225
  6. KEYTRUDA [Suspect]
     Active Substance: PEMBROLIZUMAB
     Dosage: 200 MILLIGRAM, Q3;  QUANTITY: 2, DAYS:1
     Dates: start: 20190322, end: 20190322
  7. KEYTRUDA [Suspect]
     Active Substance: PEMBROLIZUMAB
     Dosage: 200 MILLIGRAM, Q3;  QUANTITY: 2, DAYS:1
     Dates: start: 20190412
  8. KEYTRUDA [Suspect]
     Active Substance: PEMBROLIZUMAB
     Dosage: 200 MILLIGRAM, Q3;  QUANTITY: 2, DAYS:1
     Dates: start: 20190115
  9. VARIDASE [Concomitant]
     Dosage: QUANTITY: 3
     Route: 048
     Dates: start: 20181204, end: 20181205
  10. SODIUM CHLORIDE. [Concomitant]
     Active Substance: SODIUM CHLORIDE
     Dosage: BAG, QUANTITY: 1
     Dates: start: 20181204

REACTIONS (2)
  - Adverse event [Unknown]
  - Adverse event [Unknown]

NARRATIVE: CASE EVENT DATE: 201812
